FAERS Safety Report 8046467-1 (Version None)
Quarter: 2012Q1

REPORT INFORMATION
  Report Type: 
  Country: None (occurrence: None)
  Receive Date: 20120113
  Receipt Date: 20120109
  Transmission Date: 20120608
  Serious: Yes (Other)
  Sender: FDA-Public Use
  Company Number: NL-ABBOTT-12P-114-0891159-00

PATIENT
  Age: 29 Year
  Sex: Female

DRUGS (6)
  1. DEPAKENE [Suspect]
     Indication: OBSESSIVE-COMPULSIVE DISORDER
     Dosage: GASTRO-RESISTANT TABLET DAILY
  2. FLUVOXAMINE MALEATE [Concomitant]
     Indication: OBSESSIVE-COMPULSIVE DISORDER
  3. CLONAZEPAM [Concomitant]
     Indication: OBSESSIVE-COMPULSIVE DISORDER
  4. FLUVOXAMINE MALEATE [Concomitant]
     Indication: BIPOLAR DISORDER
  5. DEPAKENE [Suspect]
     Indication: BIPOLAR DISORDER
     Dosage: GASTRO-RESISTANT TABLET DAILY
     Route: 065
  6. CLONAZEPAM [Concomitant]
     Indication: BIPOLAR DISORDER

REACTIONS (10)
  - DISORIENTATION [None]
  - MEMORY IMPAIRMENT [None]
  - VISION BLURRED [None]
  - SPEECH DISORDER [None]
  - CONFUSIONAL STATE [None]
  - AMMONIA INCREASED [None]
  - HYPERSOMNIA [None]
  - ATAXIA [None]
  - DRUG LEVEL INCREASED [None]
  - DISTURBANCE IN ATTENTION [None]
